FAERS Safety Report 23042272 (Version 1)
Quarter: 2023Q4

REPORT INFORMATION
  Report Type: Spontaneous
  Country: PL (occurrence: PL)
  Receive Date: 20231008
  Receipt Date: 20231008
  Transmission Date: 20240109
  Serious: Yes (Hospitalization, Other)
  Sender: FDA-Public Use
  Company Number: PL-AMGEN-POLSP2023168561

PATIENT
  Age: 70 Year
  Sex: Male

DRUGS (4)
  1. OXALIPLATIN [Suspect]
     Active Substance: OXALIPLATIN
     Indication: Rectal cancer
     Dosage: UNK (FIRST 6 CYCLES)
     Route: 065
     Dates: start: 20210906, end: 2022
  2. FLUOROURACIL [Suspect]
     Active Substance: FLUOROURACIL
     Indication: Rectal cancer
     Dosage: UNK (FIRST 6 CYCLES)
     Route: 065
     Dates: start: 20210906, end: 2022
  3. LEUCOVORIN [Suspect]
     Active Substance: LEUCOVORIN\LEUCOVORIN CALCIUM
     Indication: Rectal cancer
     Dosage: UNK (FIRST 6 CYCLES)
     Route: 065
     Dates: start: 20210906, end: 2022
  4. VECTIBIX [Suspect]
     Active Substance: PANITUMUMAB
     Indication: Rectal cancer
     Dosage: UNK (FIRST 6 CYCLES)
     Route: 065
     Dates: start: 20210906

REACTIONS (4)
  - Pneumonia [Unknown]
  - Neuropathy peripheral [Unknown]
  - Lung cancer metastatic [Unknown]
  - Rash papular [Unknown]
